FAERS Safety Report 4516701-0 (Version None)
Quarter: 2004Q4

REPORT INFORMATION
  Report Type: 
  Country: None (occurrence: None)
  Receive Date: 20041029
  Receipt Date: 20040823
  Transmission Date: 20050328
  Serious: No
  Sender: FDA-Public Use
  Company Number: 2004-119818-NL

PATIENT
  Age: 32 Year
  Sex: Female
  Weight: 76.4 kg

DRUGS (12)
  1. NUVARING [Suspect]
     Indication: CONTRACEPTION
     Dosage: DF DAILY VAGINAL
     Route: 067
     Dates: start: 20040623
  2. NUVARING [Suspect]
     Indication: ENDOMETRIOSIS
     Dosage: DF DAILY VAGINAL
     Route: 067
     Dates: start: 20040623
  3. MEPERIDINE W/ PROMETHAZINE [Concomitant]
  4. VALTREX [Concomitant]
  5. SYNTHROID [Concomitant]
  6. VITAMIL [Concomitant]
  7. ZOLOFT [Concomitant]
  8. CENTRUM PERFORMANCE [Concomitant]
  9. PHENTERIMINE OR PLACEBO [Concomitant]
  10. TOPAMAX OR PLACEBO [Concomitant]
  11. VITAMIN C [Concomitant]
  12. MONISTAT [Concomitant]

REACTIONS (2)
  - DEVICE FAILURE [None]
  - VAGINAL MYCOSIS [None]
